FAERS Safety Report 7402078-X (Version None)
Quarter: 2011Q2

REPORT INFORMATION
  Report Type: 
  Country: None (occurrence: None)
  Receive Date: 20110408
  Receipt Date: 20110408
  Transmission Date: 20111010
  Serious: No
  Sender: FDA-Public Use
  Company Number: None

PATIENT
  Age: 14 Year
  Sex: Female
  Weight: 81.6475 kg

DRUGS (1)
  1. UP AND UP DAILY CLEANSING CLOTHS TARGET [Suspect]
     Dosage: 1 CLOTH USED ONCE TOP
     Route: 061
     Dates: start: 20110327, end: 20110328

REACTIONS (2)
  - RASH ERYTHEMATOUS [None]
  - FACE OEDEMA [None]
